FAERS Safety Report 5353555-7 (Version None)
Quarter: 2007Q2

REPORT INFORMATION
  Report Type: 
  Country: None (occurrence: None)
  Receive Date: 20070608
  Receipt Date: 20070525
  Transmission Date: 20071010
  Serious: Yes (Hospitalization)
  Sender: FDA-Public Use
  Company Number: 2007-01395

PATIENT
  Age: 65 Year
  Sex: Female
  Weight: 89 kg

DRUGS (9)
  1. VELCADE [Suspect]
     Indication: MULTIPLE MYELOMA
     Dosage: SEE IMAGE
     Dates: start: 20070413, end: 20070420
  2. VELCADE [Suspect]
     Indication: MULTIPLE MYELOMA
     Dosage: SEE IMAGE
     Dates: start: 20070424, end: 20070503
  3. VELCADE [Suspect]
     Indication: MULTIPLE MYELOMA
     Dosage: SEE IMAGE
     Dates: start: 20070507, end: 20070510
  4. DEXAMETHASONE [Suspect]
     Indication: MULTIPLE MYELOMA
     Dosage: 40.00 MG, UNK, ORAL
     Route: 048
     Dates: start: 20070413
  5. PERINDOPRIL ERBUMINE [Concomitant]
  6. DARBEPOETIN ALFA (DARBEPOETIN ALFA) [Concomitant]
  7. PREDNISONE [Concomitant]
  8. MELPHALAN (MELPHALAN) VIAL [Concomitant]
  9. ERYTHROPOIETIN (ERYTHROPOIETIN) [Concomitant]

REACTIONS (4)
  - ANXIETY [None]
  - LOSS OF CONSCIOUSNESS [None]
  - SYNCOPE [None]
  - THROMBOCYTOPENIA [None]
